FAERS Safety Report 15780661 (Version 1)
Quarter: 2019Q1

REPORT INFORMATION
  Report Type: Spontaneous
  Country: CN (occurrence: CN)
  Receive Date: 20190102
  Receipt Date: 20190102
  Transmission Date: 20190417
  Serious: Yes (Hospitalization)
  Sender: FDA-Public Use
  Company Number: CN-ROCHE-2237610

PATIENT
  Age: 63 Year
  Sex: Male
  Weight: 68 kg

DRUGS (32)
  1. BEVACIZUMAB. [Suspect]
     Active Substance: BEVACIZUMAB
     Indication: METASTASES TO CENTRAL NERVOUS SYSTEM
     Dosage: ON DAY 1
     Route: 041
     Dates: start: 20171214
  2. BEVACIZUMAB. [Suspect]
     Active Substance: BEVACIZUMAB
     Indication: LUNG ADENOCARCINOMA
     Dosage: ON DAY 1
     Route: 042
     Dates: start: 20180105
  3. BEVACIZUMAB. [Suspect]
     Active Substance: BEVACIZUMAB
     Dosage: ON DAY 1
     Route: 042
     Dates: start: 20180419
  4. BEVACIZUMAB. [Suspect]
     Active Substance: BEVACIZUMAB
     Dosage: ON DAY 1
     Route: 042
     Dates: start: 20180820
  5. PACLITAXEL. [Concomitant]
     Active Substance: PACLITAXEL
     Dosage: ON DAY 1
     Route: 065
     Dates: start: 20180128
  6. PACLITAXEL. [Concomitant]
     Active Substance: PACLITAXEL
     Dosage: ON DAY 1
     Route: 065
     Dates: start: 20181019
  7. BEVACIZUMAB. [Suspect]
     Active Substance: BEVACIZUMAB
     Dosage: ON DAY 1
     Route: 042
     Dates: start: 20180221
  8. BEVACIZUMAB. [Suspect]
     Active Substance: BEVACIZUMAB
     Dosage: ON DAY 1
     Route: 042
     Dates: start: 20180522
  9. BEVACIZUMAB. [Suspect]
     Active Substance: BEVACIZUMAB
     Dosage: ON DAY 1
     Route: 042
     Dates: start: 20180621
  10. PACLITAXEL. [Concomitant]
     Active Substance: PACLITAXEL
     Dosage: ON DAY 1
     Route: 065
     Dates: start: 20180322
  11. PACLITAXEL. [Concomitant]
     Active Substance: PACLITAXEL
     Dosage: ON DAY 1
     Route: 065
     Dates: start: 20180522
  12. PACLITAXEL. [Concomitant]
     Active Substance: PACLITAXEL
     Dosage: ON DAY 1
     Route: 065
     Dates: start: 20180820
  13. BEVACIZUMAB. [Suspect]
     Active Substance: BEVACIZUMAB
     Indication: METASTASES TO LYMPH NODES
     Dosage: ON DAY 1
     Route: 041
     Dates: start: 20121206, end: 20130410
  14. CISPLATIN. [Concomitant]
     Active Substance: CISPLATIN
     Indication: LUNG ADENOCARCINOMA
     Dosage: FROM DAY 1 TO DAY 3
     Route: 065
     Dates: start: 20121206, end: 20130410
  15. PACLITAXEL. [Concomitant]
     Active Substance: PACLITAXEL
     Indication: METASTASES TO CENTRAL NERVOUS SYSTEM
     Dosage: ON DAY 1
     Route: 065
     Dates: start: 20121206, end: 20130410
  16. PACLITAXEL. [Concomitant]
     Active Substance: PACLITAXEL
     Indication: LUNG ADENOCARCINOMA
     Dosage: ON DAY 1
     Route: 065
     Dates: start: 20171214
  17. CARBOPLATIN. [Concomitant]
     Active Substance: CARBOPLATIN
     Indication: METASTASES TO CENTRAL NERVOUS SYSTEM
     Dosage: ON DAY 2
     Route: 065
     Dates: start: 20171214
  18. PACLITAXEL. [Concomitant]
     Active Substance: PACLITAXEL
     Dosage: ON DAY 1
     Route: 065
     Dates: start: 20180221
  19. PACLITAXEL. [Concomitant]
     Active Substance: PACLITAXEL
     Dosage: ON DAY 1
     Route: 065
     Dates: start: 20180621
  20. CARBOPLATIN. [Concomitant]
     Active Substance: CARBOPLATIN
     Indication: METASTASES TO CENTRAL NERVOUS SYSTEM
     Dosage: ON DAY 2
     Route: 065
     Dates: start: 20180105
  21. BEVACIZUMAB. [Suspect]
     Active Substance: BEVACIZUMAB
     Dosage: ON DAY 1
     Route: 042
     Dates: start: 20180128
  22. BEVACIZUMAB. [Suspect]
     Active Substance: BEVACIZUMAB
     Dosage: ON DAY 1
     Route: 042
     Dates: start: 20180322
  23. PACLITAXEL. [Concomitant]
     Active Substance: PACLITAXEL
     Dosage: ON DAY 1
     Route: 065
     Dates: start: 20180419
  24. BEVACIZUMAB. [Suspect]
     Active Substance: BEVACIZUMAB
     Dosage: ON DAY 1
     Route: 042
     Dates: start: 20180718
  25. BEVACIZUMAB. [Suspect]
     Active Substance: BEVACIZUMAB
     Route: 041
     Dates: start: 20181016, end: 20181023
  26. PACLITAXEL. [Concomitant]
     Active Substance: PACLITAXEL
     Indication: METASTASES TO LYMPH NODES
     Dosage: ON DAY 1
     Route: 065
     Dates: start: 20180105
  27. CARBOPLATIN. [Concomitant]
     Active Substance: CARBOPLATIN
     Indication: LUNG ADENOCARCINOMA
     Dosage: ON DAY 2
     Route: 065
     Dates: start: 20180128
  28. CARBOPLATIN. [Concomitant]
     Active Substance: CARBOPLATIN
     Dosage: ON DAY 2
     Route: 065
     Dates: start: 20180221
  29. CARBOPLATIN. [Concomitant]
     Active Substance: CARBOPLATIN
     Dosage: ON DAY 2
     Route: 065
     Dates: start: 20180322
  30. CISPLATIN. [Concomitant]
     Active Substance: CISPLATIN
     Indication: METASTASES TO LYMPH NODES
  31. CISPLATIN. [Concomitant]
     Active Substance: CISPLATIN
     Indication: METASTASES TO CENTRAL NERVOUS SYSTEM
  32. PACLITAXEL. [Concomitant]
     Active Substance: PACLITAXEL
     Dosage: ON DAY 1
     Route: 065
     Dates: start: 20180718

REACTIONS (3)
  - Hypoaesthesia [Unknown]
  - Lacunar infarction [Recovering/Resolving]
  - Language disorder [Recovering/Resolving]

NARRATIVE: CASE EVENT DATE: 20181016
